FAERS Safety Report 5594186-3 (Version None)
Quarter: 2008Q1

REPORT INFORMATION
  Report Type: 
  Country: None (occurrence: None)
  Receive Date: 20080115
  Receipt Date: 20080105
  Transmission Date: 20080703
  Serious: Yes (Hospitalization)
  Sender: FDA-Public Use
  Company Number: CHPA2008US00444

PATIENT
  Age: 20 Year
  Sex: Male

DRUGS (1)
  1. BENEFIBER W/ WHEAT DEXTRIN (NCH)(WHEAT DEXTRIN) POWDER [Suspect]
     Indication: CONSTIPATION
     Dosage: 2 TPS, QD, ORAL
     Route: 048
     Dates: start: 20071201

REACTIONS (2)
  - DIARRHOEA [None]
  - INTESTINAL OBSTRUCTION [None]
